FAERS Safety Report 17200045 (Version 1)
Quarter: 2019Q4

REPORT INFORMATION
  Report Type: Spontaneous
  Country: SE (occurrence: SE)
  Receive Date: 20191226
  Receipt Date: 20191226
  Transmission Date: 20200122
  Serious: Yes (Hospitalization)
  Sender: FDA-Public Use
  Company Number: SE-TEVA-2019-SE-1157166

PATIENT
  Age: 23 Year
  Sex: Female

DRUGS (4)
  1. PROPAVAN [Suspect]
     Active Substance: PROPIOMAZINE
     Dosage: 15 TR ON 25 MG; 375 MG
     Route: 048
     Dates: start: 20180423, end: 20180423
  2. LERGIGAN (PROMETHAZINE HYDROCHLORIDE) [Suspect]
     Active Substance: PROMETHAZINE HYDROCHLORIDE
     Dosage: 5 TR IN 25 MG; 125 MG
     Dates: start: 20180423, end: 20180423
  3. VENLAFAXINE [Suspect]
     Active Substance: VENLAFAXINE HYDROCHLORIDE
     Dosage: 150 MG
     Dates: start: 20180423, end: 20180423
  4. IMOVANE [Suspect]
     Active Substance: ZOPICLONE
     Dosage: 8 TR IN 5 MG; 40 MG
     Dates: start: 20180423, end: 20180423

REACTIONS (5)
  - Tachycardia [Unknown]
  - Intentional self-injury [Unknown]
  - Fatigue [Unknown]
  - Intentional overdose [Unknown]
  - Akathisia [Unknown]

NARRATIVE: CASE EVENT DATE: 20180423
